FAERS Safety Report 6434720-4 (Version None)
Quarter: 2009Q4

REPORT INFORMATION
  Report Type: 
  Country: None (occurrence: None)
  Receive Date: 20091109
  Receipt Date: 20091109
  Transmission Date: 20100525
  Serious: Yes (Death)
  Sender: FDA-Public Use
  Company Number: None

PATIENT
  Sex: Male

DRUGS (12)
  1. CLOZAPINE [Suspect]
     Indication: BIPOLAR DISORDER
     Dosage: 50 MG TWICE DAILY PO
     Route: 048
     Dates: start: 20090831, end: 20091105
  2. CLOZAPINE [Suspect]
     Indication: MAJOR DEPRESSION
     Dosage: 50 MG TWICE DAILY PO
     Route: 048
     Dates: start: 20090831, end: 20091105
  3. CHLORAL HYDRATE 500 MG [Suspect]
     Indication: INSOMNIA
     Dosage: 500 MG QHS PO
     Route: 048
     Dates: start: 20091012, end: 20091105
  4. PROZAC [Concomitant]
  5. WELLBUTRIN [Concomitant]
  6. RISPERDAL [Concomitant]
  7. TEMAZEPAM [Concomitant]
  8. TRAZODONE HCL [Concomitant]
  9. AMBIEN [Concomitant]
  10. DEPAKOTE [Concomitant]
  11. KLONOPIN [Concomitant]
  12. LUNESTA [Concomitant]

REACTIONS (1)
  - ASPHYXIA [None]
